FAERS Safety Report 23988833 (Version 1)
Quarter: 2024Q2

REPORT INFORMATION
  Report Type: Spontaneous
  Country: US (occurrence: US)
  Receive Date: 20240619
  Receipt Date: 20240619
  Transmission Date: 20240715
  Serious: Yes (Death, Other)
  Sender: FDA-Public Use
  Company Number: US-AMGEN-USASP2024114926

PATIENT
  Age: 53 Year
  Sex: Male

DRUGS (7)
  1. CARFILZOMIB [Suspect]
     Active Substance: CARFILZOMIB
     Indication: Plasma cell myeloma refractory
     Dosage: 56 MILLIGRAM/SQ. METER, DAY 1
     Route: 065
  2. CARFILZOMIB [Suspect]
     Active Substance: CARFILZOMIB
     Dosage: 56 MILLIGRAM/SQ. METER, DAY 8
     Route: 065
  3. PEGFILGRASTIM [Suspect]
     Active Substance: PEGFILGRASTIM
     Indication: Prophylaxis
     Dosage: UNK (ON DAY 8)
     Route: 065
  4. DEXAMETHASONE [Suspect]
     Active Substance: DEXAMETHASONE
     Indication: Plasma cell myeloma refractory
     Dosage: 40 MILLIGRAM (ON DAYS 1 THROUGH 4)
     Route: 065
  5. CYCLOPHOSPHAMIDE [Suspect]
     Active Substance: CYCLOPHOSPHAMIDE
     Indication: Plasma cell myeloma refractory
     Dosage: 400 MILLIGRAM/SQ. METER, QD (CONTINUOUS OVER DAYS 1 THROUGH 4)
     Route: 065
  6. ETOPOSIDE [Suspect]
     Active Substance: ETOPOSIDE
     Indication: Plasma cell myeloma refractory
     Dosage: 40 MILLIGRAM/SQ. METER, QD (CONTINUOUS OVER DAYS 1 THROUGH 4)
     Route: 065
  7. CISPLATIN [Suspect]
     Active Substance: CISPLATIN
     Indication: Plasma cell myeloma refractory
     Dosage: 15 MILLIGRAM/SQ. METER, QD (CONTINUOUS OVER DAYS 1 THROUGH 4)
     Route: 065

REACTIONS (10)
  - Plasma cell myeloma recurrent [Unknown]
  - Death [Fatal]
  - Minimal residual disease [Unknown]
  - Therapy partial responder [Unknown]
  - Off label use [Unknown]
  - Febrile neutropenia [Unknown]
  - Bacterial sepsis [Unknown]
  - Pseudomonal bacteraemia [Unknown]
  - Thrombophlebitis septic [Unknown]
  - Infection [Unknown]
